FAERS Safety Report 14688599 (Version 1)
Quarter: 2018Q1

REPORT INFORMATION
  Report Type: Report from Study
  Country: None (occurrence: CO)
  Receive Date: 20180328
  Receipt Date: 20180328
  Transmission Date: 20180509
  Serious: Yes (Death, Hospitalization)
  Sender: FDA-Public Use
  Company Number: CO-ABBVIE-18K-036-2296495-00

PATIENT
  Age: 57 Year
  Sex: Male
  Weight: 40 kg

DRUGS (1)
  1. HUMIRA [Suspect]
     Active Substance: ADALIMUMAB
     Indication: COLITIS ULCERATIVE
     Route: 058
     Dates: start: 20171124, end: 20171124

REACTIONS (2)
  - Colitis ulcerative [Recovering/Resolving]
  - Diarrhoea haemorrhagic [Fatal]

NARRATIVE: CASE EVENT DATE: 20180309
